FAERS Safety Report 18337144 (Version 2)
Quarter: 2020Q4

REPORT INFORMATION
  Report Type: Spontaneous
  Country: US (occurrence: US)
  Receive Date: 20201002
  Receipt Date: 20201027
  Transmission Date: 20210113
  Serious: Yes (Death, Hospitalization)
  Sender: FDA-Public Use
  Company Number: US-TEVA-2020-US-1833041

PATIENT
  Age: 41 Year
  Sex: Female

DRUGS (3)
  1. HYDROXYCHLOROQUINE [Suspect]
     Active Substance: HYDROXYCHLOROQUINE
     Indication: COVID-19
     Route: 065
  2. AZITHROMYCIN ANHYDROUS. [Suspect]
     Active Substance: AZITHROMYCIN ANHYDROUS
     Indication: COVID-19
     Route: 065
  3. ESTROGEN [Suspect]
     Active Substance: ESTROGENS
     Indication: ORAL CONTRACEPTION
     Dosage: PILL
     Route: 048

REACTIONS (4)
  - Intraventricular haemorrhage [Fatal]
  - Hydrocephalus [Fatal]
  - Off label use [Unknown]
  - Cerebral venous thrombosis [Fatal]
